FAERS Safety Report 12423686 (Version 1)
Quarter: 2016Q2

REPORT INFORMATION
  Report Type: Spontaneous
  Country: None (occurrence: None)
  Receive Date: 20160531
  Receipt Date: 20160531
  Transmission Date: 20160815
  Serious: Yes (Life-Threatening, Hospitalization, Disabling)
  Sender: FDA-Public Use
  Company Number: None

PATIENT
  Age: 36 Year
  Sex: Female
  Weight: 80 kg

DRUGS (11)
  1. LISINOPRIL (PRINIVIL, ZESTRIL) [Concomitant]
  2. VELNAFAXINE (EFFEXOR XR) [Concomitant]
  3. XANAX [Concomitant]
     Active Substance: ALPRAZOLAM
  4. MELATONIN [Concomitant]
     Active Substance: MELATONIN
  5. MOTRIN [Concomitant]
     Active Substance: IBUPROFEN
  6. NORCO [Concomitant]
     Active Substance: ACETAMINOPHEN\HYDROCODONE BITARTRATE
  7. PRENALAL PLUS [Concomitant]
  8. ALBUTEROL HFA [Concomitant]
     Active Substance: ALBUTEROL SULFATE
  9. FERROUS SULFATE. [Concomitant]
     Active Substance: FERROUS SULFATE
  10. OMEGA 3 FATTY ACID (FISH OIL) [Concomitant]
  11. CLOMIPHENE [Suspect]
     Active Substance: CLOMIPHENE
     Indication: INFERTILITY
     Dosage: 50 MG ON CYCLE DAYS 307 ORAL
     Route: 048
     Dates: start: 20151112, end: 20160118

REACTIONS (6)
  - Hyperhidrosis [None]
  - Nausea [None]
  - Pain in extremity [None]
  - Acute myocardial infarction [None]
  - Malaise [None]
  - Dizziness [None]

NARRATIVE: CASE EVENT DATE: 20160118
